FAERS Safety Report 20595109 (Version 2)
Quarter: 2023Q1

REPORT INFORMATION
  Report Type: Spontaneous
  Country: IE (occurrence: IE)
  Receive Date: 20220315
  Receipt Date: 20230203
  Transmission Date: 20230418
  Serious: Yes (Other)
  Sender: FDA-Public Use
  Company Number: IE-MYLANLABS-2022M1018023

PATIENT
  Age: 1 Year
  Sex: Female

DRUGS (3)
  1. PREGABALIN [Suspect]
     Active Substance: PREGABALIN
     Dosage: 1200 MILLIGRAM, DAILY, MOTHER RECEIVED 600MG PRESCRIBED PREGABALIN AND 600MG ILLICIT?
     Route: 064
  2. PREGABALIN [Suspect]
     Active Substance: PREGABALIN
     Dosage: 1400 MILLIGRAM, DAILY
     Route: 063
  3. DIAZEPAM [Suspect]
     Active Substance: DIAZEPAM
     Indication: Anxiety
     Dosage: 5 MILLIGRAM, QD
     Route: 064

REACTIONS (3)
  - Developmental delay [Not Recovered/Not Resolved]
  - Foetal exposure during pregnancy [Recovered/Resolved]
  - Exposure via breast milk [Unknown]
